FAERS Safety Report 8346817-2 (Version None)
Quarter: 2012Q2

REPORT INFORMATION
  Report Type: 
  Country: None (occurrence: None)
  Receive Date: 20120509
  Receipt Date: 20120506
  Transmission Date: 20120825
  Serious: Yes (Hospitalization)
  Sender: FDA-Public Use
  Company Number: US-AMGEN-USASP2012028621

PATIENT
  Sex: Female

DRUGS (4)
  1. TAXOL [Concomitant]
     Indication: BREAST CANCER
  2. ADRIAMYCIN PFS [Concomitant]
     Indication: BREAST CANCER
  3. CYTOXAN [Concomitant]
     Indication: BREAST CANCER
  4. NEULASTA [Suspect]
     Indication: NEUTROPENIA

REACTIONS (1)
  - FEBRILE NEUTROPENIA [None]
